FAERS Safety Report 6570269-6 (Version None)
Quarter: 2010Q1

REPORT INFORMATION
  Report Type: 
  Country: None (occurrence: None)
  Receive Date: 20100204
  Receipt Date: 20100126
  Transmission Date: 20100710
  Serious: Yes (Other)
  Sender: FDA-Public Use
  Company Number: US-PFIZER INC-2010011367

PATIENT
  Sex: Male

DRUGS (1)
  1. GENOTROPIN [Suspect]
     Indication: GROWTH HORMONE DEFICIENCY
     Dosage: 1.6 MG, 1X/DAY
     Route: 058
     Dates: start: 20020101

REACTIONS (7)
  - COUGH [None]
  - DYSPNOEA [None]
  - EYE SWELLING [None]
  - NASAL CONGESTION [None]
  - PRURITUS [None]
  - SKIN REACTION [None]
  - SWELLING FACE [None]
